FAERS Safety Report 11943937 (Version 1)
Quarter: 2016Q1

REPORT INFORMATION
  Report Type: Spontaneous
  Country: US (occurrence: US)
  Receive Date: 20160125
  Receipt Date: 20160125
  Transmission Date: 20160526
  Serious: No
  Sender: FDA-Public Use
  Company Number: US-UNITED THERAPEUTICS-UNT-2015-014309

PATIENT
  Age: 9 Year
  Sex: Male
  Weight: 27.94 kg

DRUGS (2)
  1. REMODULIN [Suspect]
     Active Substance: TREPROSTINIL
     Dosage: 0.07067 ?G/KG/MIN, CONTINUING
     Route: 058
     Dates: start: 20150413
  2. REMODULIN [Suspect]
     Active Substance: TREPROSTINIL
     Indication: PULMONARY ARTERIAL HYPERTENSION
     Dosage: 0.06478 ?G/KG/MIN, CONTINUING
     Route: 058
     Dates: start: 20150413

REACTIONS (3)
  - Infusion site pruritus [Unknown]
  - Clostridium difficile infection [Not Recovered/Not Resolved]
  - Infusion site erythema [Unknown]

NARRATIVE: CASE EVENT DATE: 201511
